FAERS Safety Report 5839530-4 (Version None)
Quarter: 2008Q3

REPORT INFORMATION
  Report Type: 
  Country: None (occurrence: None)
  Receive Date: 20080807
  Receipt Date: 20080724
  Transmission Date: 20090109
  Serious: Yes (Hospitalization, Other)
  Sender: FDA-Public Use
  Company Number: 15204

PATIENT
  Age: 34 Year
  Sex: Male

DRUGS (5)
  1. MORPHINE SULFATE [Suspect]
     Indication: BACK PAIN
     Dosage: 60 MG TID ORALLY
     Route: 048
     Dates: start: 20020101, end: 20080101
  2. XANAX [Concomitant]
  3. SOMA [Concomitant]
  4. NEXIUM [Concomitant]
  5. ALBUTEROL [Concomitant]

REACTIONS (6)
  - ANGINA PECTORIS [None]
  - ASTHENIA [None]
  - CHEST DISCOMFORT [None]
  - FATIGUE [None]
  - HEART RATE DECREASED [None]
  - PHARMACEUTICAL PRODUCT COMPLAINT [None]
